FAERS Safety Report 8199094-X (Version None)
Quarter: 2012Q1

REPORT INFORMATION
  Report Type: 
  Country: None (occurrence: None)
  Receive Date: 20120309
  Receipt Date: 20120227
  Transmission Date: 20120608
  Serious: Yes (Other)
  Sender: FDA-Public Use
  Company Number: US-JNJFOC-20120214617

PATIENT
  Age: 66 Year
  Sex: Female
  Weight: 74.84 kg

DRUGS (6)
  1. SINGULAIR [Concomitant]
     Indication: MULTIPLE ALLERGIES
     Route: 065
  2. TOPAMAX [Concomitant]
     Indication: MIGRAINE
     Dosage: 2 YEARS
     Route: 065
  3. PATANASE [Concomitant]
     Indication: MULTIPLE ALLERGIES
     Route: 065
  4. NEUTROGENA T/GEL THERAPEUTIC SHAMPOO [Suspect]
     Indication: PRURITUS
     Route: 061
     Dates: start: 20120226, end: 20120226
  5. SINGULAIR [Concomitant]
     Indication: ASTHMA
     Route: 065
  6. ADVAIR DISKUS 100/50 [Concomitant]
     Indication: ASTHMA
     Route: 065

REACTIONS (2)
  - PRODUCT QUALITY ISSUE [None]
  - ASTHMA [None]
